FAERS Safety Report 23357949 (Version 1)
Quarter: 2024Q1

REPORT INFORMATION
  Report Type: Other
  Country: US (occurrence: None)
  Receive Date: 20240102
  Receipt Date: 20240102
  Transmission Date: 20240410
  Serious: Yes (Other)
  Sender: FDA-Public Use
  Company Number: US-Nivagen-000086

PATIENT
  Age: 39 Year
  Sex: Female

DRUGS (6)
  1. TEMOZOLOMIDE [Suspect]
     Active Substance: TEMOZOLOMIDE
     Indication: Astrocytoma
     Dosage: 75 MG/M2 QD
  2. OLAPARIB [Suspect]
     Active Substance: OLAPARIB
     Indication: Astrocytoma
     Dosage: 150 MG THREE TIMES PER WEEK
  3. BEVACIZUMAB [Concomitant]
     Active Substance: BEVACIZUMAB
     Indication: Astrocytoma
  4. TEMOZOLOMIDE [Suspect]
     Active Substance: TEMOZOLOMIDE
     Indication: Disease recurrence
     Dosage: 75 MG/M2 QD
  5. OLAPARIB [Suspect]
     Active Substance: OLAPARIB
     Indication: Disease recurrence
     Dosage: 150 MG THREE TIMES PER WEEK
  6. BEVACIZUMAB [Concomitant]
     Active Substance: BEVACIZUMAB
     Indication: Disease recurrence

REACTIONS (8)
  - Astrocytoma [Unknown]
  - Disease progression [Unknown]
  - Lymphopenia [Unknown]
  - Diarrhoea [Unknown]
  - Fatigue [Unknown]
  - Nausea [Unknown]
  - Vomiting [Unknown]
  - Weight decreased [Unknown]
